FAERS Safety Report 21838974 (Version 1)
Quarter: 2023Q1

REPORT INFORMATION
  Report Type: Spontaneous
  Country: US (occurrence: US)
  Receive Date: 20230109
  Receipt Date: 20230109
  Transmission Date: 20230417
  Serious: Yes (Other)
  Sender: FDA-Public Use
  Company Number: US-PFIZER INC-202300006000

PATIENT
  Age: 65 Year
  Sex: Female
  Weight: 78.02 kg

DRUGS (22)
  1. LEVOXYL [Suspect]
     Active Substance: LEVOTHYROXINE SODIUM
     Indication: Hypothyroidism
     Dosage: 225 UG, 2X/DAY
  2. LEVOXYL [Suspect]
     Active Substance: LEVOTHYROXINE SODIUM
     Dosage: 175 UG (175MCG THE OTHER SIX DAYS A WEEK)
  3. LEVOXYL [Suspect]
     Active Substance: LEVOTHYROXINE SODIUM
     Dosage: 200 UG, WEEKLY (ONCE A WEEK)
  4. ESOMEPRAZOLE [Concomitant]
     Active Substance: ESOMEPRAZOLE
     Indication: Gastric ulcer
     Dosage: 40 MG, 2X/DAY
  5. ESOMEPRAZOLE [Concomitant]
     Active Substance: ESOMEPRAZOLE
     Dosage: 20 MG, 4X/DAY
  6. FAMOTIDINE [Concomitant]
     Active Substance: FAMOTIDINE
     Indication: Gastric ulcer
     Dosage: 40 MG, 1X/DAY
  7. DONNATAL [Concomitant]
     Active Substance: ATROPINE SULFATE\HYOSCYAMINE SULFATE\PHENOBARBITAL\SCOPOLAMINE HYDROBROMIDE
     Dosage: UNK
  8. HYDROXYCHLOROQUINE SULFATE [Concomitant]
     Active Substance: HYDROXYCHLOROQUINE SULFATE
     Indication: Systemic lupus erythematosus
     Dosage: 200 MG, 2X/DAY
  9. LEFLUNOMIDE [Concomitant]
     Active Substance: LEFLUNOMIDE
     Dosage: 20 MG, 1X/DAY
  10. GABAPENTIN [Concomitant]
     Active Substance: GABAPENTIN
     Dosage: 400 MG, 2X/DAY, (SUPPOSED TO BE 4 TIMES A DAY BUT SHE PUT IT DOWN TO 2 TIMES A DAY)
  11. AMITRIPTYLINE [Concomitant]
     Active Substance: AMITRIPTYLINE
     Dosage: 2-25MG, 1X/DAY (AT NIGHT)
  12. RITUXAN [Concomitant]
     Active Substance: RITUXIMAB
     Indication: Systemic lupus erythematosus
     Dosage: INFUSION EVERY 3-6 MONTHS
  13. BUPROPION HYDROCHLORIDE [Concomitant]
     Active Substance: BUPROPION HYDROCHLORIDE
     Dosage: 200 MG, 2X/DAY
  14. METHOCARBAMOL [Concomitant]
     Active Substance: METHOCARBAMOL
     Dosage: 500 MG, 1X/DAY (AT BEDTIME)
  15. FIORINAL [Concomitant]
     Active Substance: ASPIRIN\BUTALBITAL\CAFFEINE
     Indication: Migraine
     Dosage: 325 MG
  16. TOPIRAMATE [Concomitant]
     Active Substance: TOPIRAMATE
     Dosage: 25 MG, 1X/DAY
  17. IMITREX [Concomitant]
     Active Substance: SUMATRIPTAN SUCCINATE
     Indication: Migraine
     Dosage: 100 MG, AS NEEDED
  18. IRON [Concomitant]
     Active Substance: IRON
     Dosage: INFUSION WHEN NEEDED LIKE EVERY 3 MONTHS
  19. FLOVENT HFA [Concomitant]
     Active Substance: FLUTICASONE PROPIONATE
     Dosage: UNK
  20. FOLIC ACID [Concomitant]
     Active Substance: FOLIC ACID
     Dosage: 1 MG, 2X/DAY
  21. ZYRTEC [Concomitant]
     Active Substance: CETIRIZINE HYDROCHLORIDE
     Indication: Multiple allergies
     Dosage: UNK, AS NEEDED (TAKEN JUST WHEN HER ALLERGIES BOTHER HER)
  22. EPIPEN [Concomitant]
     Active Substance: EPINEPHRINE
     Indication: Multiple allergies
     Dosage: UNK

REACTIONS (5)
  - Illness [Unknown]
  - Chronic kidney disease [Unknown]
  - Product dose omission issue [Unknown]
  - Product supply issue [Unknown]
  - Off label use [Unknown]

NARRATIVE: CASE EVENT DATE: 20221101
